FAERS Safety Report 12181248 (Version 2)
Quarter: 2016Q1

REPORT INFORMATION
  Report Type: Spontaneous
  Country: US (occurrence: US)
  Receive Date: 20160315
  Receipt Date: 20160317
  Transmission Date: 20160526
  Serious: No
  Sender: FDA-Public Use
  Company Number: US-ASTRAZENECA-2016SE16857

PATIENT
  Sex: Female

DRUGS (1)
  1. BYETTA [Suspect]
     Active Substance: EXENATIDE
     Route: 058

REACTIONS (5)
  - Nausea [Unknown]
  - Drug dose omission [Unknown]
  - Metabolic syndrome [Unknown]
  - Viral infection [Unknown]
  - Weight decreased [Unknown]
